FAERS Safety Report 5673455-2 (Version None)
Quarter: 2008Q1

REPORT INFORMATION
  Report Type: 
  Country: None (occurrence: None)
  Receive Date: 20080319
  Receipt Date: 20080307
  Transmission Date: 20080703
  Serious: Yes (Hospitalization)
  Sender: FDA-Public Use
  Company Number: CH-ROCHE-552134

PATIENT
  Age: 75 Year
  Sex: Female

DRUGS (4)
  1. VALIUM [Suspect]
     Indication: DRUG USE FOR UNKNOWN INDICATION
     Dosage: ROUTE REPORTED AS INTRAVENOUS (NOT OTHERWISE SPECIFIED).
     Route: 042
     Dates: start: 20080107, end: 20080107
  2. DORMICUM (ORAL) [Suspect]
     Indication: DRUG USE FOR UNKNOWN INDICATION
     Route: 065
     Dates: start: 20080107, end: 20080107
  3. RIVOTRIL [Suspect]
     Indication: DRUG USE FOR UNKNOWN INDICATION
     Route: 065
     Dates: start: 20080107, end: 20080107
  4. PROPOFOL [Suspect]
     Indication: DRUG USE FOR UNKNOWN INDICATION
     Dosage: ROUTE REPORTED AS INTRAVENOUS (NOT OTHERWISE SPECIFIED).
     Route: 042
     Dates: start: 20080107, end: 20080107

REACTIONS (2)
  - DEPRESSED LEVEL OF CONSCIOUSNESS [None]
  - MYOCLONUS [None]
